FAERS Safety Report 24799580 (Version 1)
Quarter: 2025Q1

REPORT INFORMATION
  Report Type: Spontaneous
  Country: US (occurrence: None)
  Receive Date: 20250102
  Receipt Date: 20250102
  Transmission Date: 20250409
  Serious: Yes (Hospitalization)
  Sender: FDA-CTU
  Company Number: None

PATIENT
  Age: 59 Year
  Sex: Female
  Weight: 54.9 kg

DRUGS (3)
  1. DEXAMETHASONE [Suspect]
     Active Substance: DEXAMETHASONE
     Dates: start: 20241217
  2. FUDR [Suspect]
     Active Substance: FLOXURIDINE
     Dates: end: 20241217
  3. HEPARIN SODIUM [Suspect]
     Active Substance: HEPARIN SODIUM
     Dates: end: 20241217

REACTIONS (5)
  - Abdominal pain [None]
  - Constipation [None]
  - Diarrhoea [None]
  - Chromaturia [None]
  - Condition aggravated [None]

NARRATIVE: CASE EVENT DATE: 20241231
